FAERS Safety Report 11158097 (Version 2)
Quarter: 2015Q2

REPORT INFORMATION
  Report Type: Spontaneous
  Country: JP (occurrence: JP)
  Receive Date: 20150603
  Receipt Date: 20150614
  Transmission Date: 20150821
  Serious: Yes (Hospitalization, Other)
  Sender: FDA-Public Use
  Company Number: JP-CIPLA LTD.-2015JP04467

PATIENT

DRUGS (6)
  1. CARBOPLATIN. [Suspect]
     Active Substance: CARBOPLATIN
     Indication: SQUAMOUS CELL CARCINOMA
     Dosage: AREA UNDER THE CURVE [AUC] OF 6 ON DAY 1
     Route: 065
  2. IRINOTECAN [Suspect]
     Active Substance: IRINOTECAN
     Indication: SQUAMOUS CELL CARCINOMA
     Dosage: 100 MG/MM2 FOR 90 MIN ON DAYS 1, 8, AND 15 AT 4-WEEK INTERVALS
     Route: 065
  3. PACLITAXEL. [Suspect]
     Active Substance: PACLITAXEL
     Dosage: 60 MG/MM2
     Route: 065
  4. PACLITAXEL. [Suspect]
     Active Substance: PACLITAXEL
     Indication: SQUAMOUS CELL CARCINOMA
     Dosage: 80 MG/MM2 ON DAYS 1, 8, AND 15
     Route: 065
  5. CARBOPLATIN. [Suspect]
     Active Substance: CARBOPLATIN
     Dosage: AREA UNDER THE CURVE EQUAL TO 4.
     Route: 065
  6. IRINOTECAN [Suspect]
     Active Substance: IRINOTECAN
     Dosage: 80 MG/MM2
     Route: 065

REACTIONS (7)
  - Drug resistance [Unknown]
  - Tumour marker increased [Unknown]
  - Bone marrow failure [Unknown]
  - Incisional hernia [Unknown]
  - Mass [Unknown]
  - Febrile neutropenia [Unknown]
  - Diarrhoea [Unknown]
